FAERS Safety Report 4304700-3 (Version None)
Quarter: 2004Q1

REPORT INFORMATION
  Report Type: 
  Country: None (occurrence: None)
  Receive Date: 20040226
  Receipt Date: 20031119
  Transmission Date: 20041129
  Serious: Yes (Other)
  Sender: FDA-Public Use
  Company Number: US-GLAXOSMITHKLINE-A0440380A

PATIENT
  Age: 42 Year
  Sex: Male

DRUGS (1)
  1. WELLBUTRIN [Suspect]
     Indication: DEPRESSION
     Dosage: 300MG PER DAY
     Route: 048

REACTIONS (1)
  - CONVULSION [None]
